FAERS Safety Report 9728921 (Version 2)
Quarter: 2013Q4

REPORT INFORMATION
  Report Type: Spontaneous
  Country: US (occurrence: US)
  Receive Date: 20131204
  Receipt Date: 20131226
  Transmission Date: 20140711
  Serious: Yes (Other)
  Sender: FDA-Public Use
  Company Number: US-PFIZER INC-2013345516

PATIENT
  Age: 59 Year
  Sex: Female
  Weight: 72.56 kg

DRUGS (9)
  1. LYRICA [Suspect]
     Indication: DIABETIC NEUROPATHY
     Dosage: 75 MG, 3X/DAY
     Route: 048
     Dates: end: 201311
  2. LYRICA [Suspect]
     Indication: NEURALGIA
     Dosage: 75 MG, 2X/DAY
     Route: 048
     Dates: start: 201311, end: 201311
  3. LYRICA [Suspect]
     Indication: MOBILITY DECREASED
     Dosage: UNK
     Route: 048
     Dates: start: 2011
  4. LYRICA [Suspect]
     Dosage: 75 MG, 3X/DAY
     Route: 048
     Dates: end: 201311
  5. XANAX [Suspect]
     Indication: TREMOR
     Dosage: 1 MG, 3X/DAY
  6. OXYCODONE [Concomitant]
     Indication: PAIN
     Dosage: 10 MG, EVERY 4 TO 6 HOURS
  7. ALPRAZOLAM [Concomitant]
     Dosage: 1 MG, 3X/DAY
  8. DURAGESIC [Concomitant]
     Dosage: 25 MG, EVERY THREE DAYS
  9. PROPANOLOL [Concomitant]
     Indication: MIGRAINE
     Dosage: UNK

REACTIONS (8)
  - Depression [Unknown]
  - Activities of daily living impaired [Unknown]
  - Mobility decreased [Unknown]
  - Impaired driving ability [Unknown]
  - Pain [Unknown]
  - Inflammation [Unknown]
  - Off label use [Unknown]
  - Tremor [Unknown]
